FAERS Safety Report 25184942 (Version 1)
Quarter: 2025Q2

REPORT INFORMATION
  Report Type: Report from Study
  Country: DE (occurrence: DE)
  Receive Date: 20250410
  Receipt Date: 20250410
  Transmission Date: 20250717
  Serious: Yes (Other)
  Sender: ALIMERA
  Company Number: DE-ALIMERA SCIENCES LIMITED-DE-IL-2016-002827

PATIENT
  Sex: Male

DRUGS (9)
  1. ILUVIEN [Suspect]
     Active Substance: FLUOCINOLONE ACETONIDE
     Indication: Diabetic retinal oedema
     Dosage: 0.25 MICROGRAM, QD
     Route: 031
     Dates: start: 20150814
  2. Floxal eye drops [Concomitant]
     Dates: start: 20150817, end: 20150818
  3. XARELTO [Concomitant]
     Active Substance: RIVAROXABAN
     Indication: Myocardial infarction
  4. METOPROLOL [Concomitant]
     Active Substance: METOPROLOL
     Indication: Myocardial infarction
     Dates: start: 2014
  5. METFORMIN [Concomitant]
     Active Substance: METFORMIN HYDROCHLORIDE
     Indication: Diabetes mellitus
  6. NOVORAPID [Concomitant]
     Active Substance: INSULIN ASPART
     Indication: Diabetes mellitus
  7. LEVEMIR [Concomitant]
     Active Substance: INSULIN DETEMIR
     Indication: Diabetes mellitus
  8. DULOXETINE [Concomitant]
     Active Substance: DULOXETINE
     Indication: Depression
  9. COMBIGAN [Concomitant]
     Active Substance: BRIMONIDINE TARTRATE\TIMOLOL MALEATE
     Indication: Glaucoma

REACTIONS (1)
  - Hypotony of eye [Recovered/Resolved]

NARRATIVE: CASE EVENT DATE: 20150814
